FAERS Safety Report 10204583 (Version 1)
Quarter: 2014Q2

REPORT INFORMATION
  Report Type: Report from Study
  Country: US (occurrence: US)
  Receive Date: 20140529
  Receipt Date: 20140529
  Transmission Date: 20141212
  Serious: Yes (Other)
  Sender: FDA-Public Use
  Company Number: US-GILEAD-2014-0103398

PATIENT
  Sex: Female

DRUGS (2)
  1. SOFOSBUVIR [Suspect]
     Indication: CHRONIC HEPATITIS C
     Dosage: 400 MG, UNK
     Route: 065
  2. INTERFERON [Suspect]
     Indication: CHRONIC HEPATITIS C
     Route: 058

REACTIONS (2)
  - Unevaluable event [Unknown]
  - Drug interaction [Unknown]
